FAERS Safety Report 19971045 (Version 4)
Quarter: 2022Q1

REPORT INFORMATION
  Report Type: Spontaneous
  Country: US (occurrence: US)
  Receive Date: 20211019
  Receipt Date: 20220104
  Transmission Date: 20220423
  Serious: No
  Sender: FDA-Public Use
  Company Number: US-ELI_LILLY_AND_COMPANY-US202110006404

PATIENT
  Age: 77 Year
  Sex: Female

DRUGS (2)
  1. FORTEO [Suspect]
     Active Substance: TERIPARATIDE
     Indication: Osteoporosis
     Dosage: UNK UNK, UNKNOWN
     Route: 065
     Dates: start: 20211008, end: 20211013
  2. FORTEO [Suspect]
     Active Substance: TERIPARATIDE
     Dosage: 20 UG, DAILY
     Route: 058
     Dates: start: 20210928

REACTIONS (15)
  - Muscular weakness [Unknown]
  - Abdominal pain upper [Unknown]
  - Balance disorder [Unknown]
  - Amnesia [Unknown]
  - Decreased appetite [Unknown]
  - Back pain [Unknown]
  - Gait disturbance [Unknown]
  - Confusional state [Unknown]
  - Abdominal discomfort [Unknown]
  - Asthenia [Not Recovered/Not Resolved]
  - Chest discomfort [Unknown]
  - Dizziness [Unknown]
  - Blood calcium increased [Unknown]
  - Nausea [Unknown]
  - Drug hypersensitivity [Unknown]

NARRATIVE: CASE EVENT DATE: 20211012
